FAERS Safety Report 22631364 (Version 1)
Quarter: 2023Q2

REPORT INFORMATION
  Report Type: Report from Study
  Country: US (occurrence: US)
  Receive Date: 20230623
  Receipt Date: 20230623
  Transmission Date: 20230722
  Serious: Yes (Other)
  Sender: FDA-Public Use
  Company Number: US-002147023-NVSC2023US137045

PATIENT
  Sex: Male

DRUGS (5)
  1. CLOBETASOL [Suspect]
     Active Substance: CLOBETASOL
     Indication: Psoriasis
     Dosage: UNK
     Route: 065
  2. MUPIROCIN [Suspect]
     Active Substance: MUPIROCIN
     Indication: Psoriasis
     Dosage: UNK
     Route: 065
  3. ALBUTEROL SULFATE [Suspect]
     Active Substance: ALBUTEROL SULFATE
     Indication: Psoriasis
     Dosage: UNK
  4. LEVOTHYROXINE [Suspect]
     Active Substance: LEVOTHYROXINE
     Indication: Psoriasis
     Dosage: UNK
     Route: 065
  5. HUMIRA [Concomitant]
     Active Substance: ADALIMUMAB
     Indication: Product used for unknown indication
     Dosage: UNK
     Route: 065

REACTIONS (8)
  - Cellulitis [Unknown]
  - Ulcer [Unknown]
  - Stasis dermatitis [Unknown]
  - Skin lesion [Unknown]
  - Hidradenitis [Unknown]
  - Psoriasis [Unknown]
  - Drug ineffective [Unknown]
  - Product use in unapproved indication [Unknown]
